FAERS Safety Report 21375240 (Version 3)
Quarter: 2022Q4

REPORT INFORMATION
  Report Type: Spontaneous
  Country: US (occurrence: US)
  Receive Date: 20220926
  Receipt Date: 20221014
  Transmission Date: 20230112
  Serious: Yes (Other)
  Sender: FDA-Public Use
  Company Number: US-GILEAD-2022-0598922

PATIENT

DRUGS (3)
  1. TRUVADA [Suspect]
     Active Substance: EMTRICITABINE\TENOFOVIR DISOPROXIL FUMARATE
     Indication: HIV infection
     Dosage: UNK
     Route: 065
  2. PREZISTA [Concomitant]
     Active Substance: DARUNAVIR ETHANOLATE
  3. NORVIR [Concomitant]
     Active Substance: RITONAVIR

REACTIONS (6)
  - Syphilis [Unknown]
  - Fatigue [Unknown]
  - Gastrointestinal motility disorder [Unknown]
  - Musculoskeletal stiffness [Unknown]
  - Mental disorder [Unknown]
  - Treatment noncompliance [Unknown]
